FAERS Safety Report 16266320 (Version 6)
Quarter: 2020Q1

REPORT INFORMATION
  Report Type: Spontaneous
  Country: US (occurrence: US)
  Receive Date: 20190502
  Receipt Date: 20200327
  Transmission Date: 20200409
  Serious: No
  Sender: FDA-Public Use
  Company Number: US-PFIZER INC-2019184593

PATIENT
  Age: 60 Year
  Sex: Female
  Weight: 68.95 kg

DRUGS (2)
  1. CHANTIX [Suspect]
     Active Substance: VARENICLINE TARTRATE
     Dosage: 100 MG, 2X/DAY (1 IN PILL IN THE MORNING AND 1 PILL IN THE EVENING BY MOUTH)
     Route: 048
     Dates: start: 2019
  2. CHANTIX [Suspect]
     Active Substance: VARENICLINE TARTRATE
     Indication: SMOKING CESSATION THERAPY
     Dosage: 1 MG, 2X/DAY
     Route: 048
     Dates: start: 201805

REACTIONS (6)
  - Product dispensing issue [Unknown]
  - Intentional product misuse [Unknown]
  - Wrong technique in product usage process [Unknown]
  - Tobacco user [Unknown]
  - Intentional overdose [Unknown]
  - Malaise [Unknown]

NARRATIVE: CASE EVENT DATE: 2019
